FAERS Safety Report 15590273 (Version 1)
Quarter: 2018Q4

REPORT INFORMATION
  Report Type: Spontaneous
  Country: US (occurrence: US)
  Receive Date: 20181106
  Receipt Date: 20181106
  Transmission Date: 20190205
  Serious: No
  Sender: FDA-Public Use
  Company Number: US-ASPEN-GLO2018US010006

PATIENT
  Age: 21 Year
  Sex: Male

DRUGS (4)
  1. BENZTROPINE MESYLATE. [Suspect]
     Active Substance: BENZTROPINE MESYLATE
     Indication: ACUTE PSYCHOSIS
     Dosage: 2 MG, BID
     Route: 048
  2. PALIPERIDONE PALMITATE [Interacting]
     Active Substance: PALIPERIDONE PALMITATE
     Indication: PSYCHOTIC DISORDER
     Dosage: 234 MG
     Route: 030
  3. RISPERIDONE. [Interacting]
     Active Substance: RISPERIDONE
     Indication: ACUTE PSYCHOSIS
     Dosage: 2 MG, QD. MORNING
     Route: 048
  4. RISPERIDONE. [Interacting]
     Active Substance: RISPERIDONE
     Dosage: 3 MG, QD, EVENING
     Route: 048

REACTIONS (3)
  - Off label use [Unknown]
  - Sinus tachycardia [Recovered/Resolved]
  - Potentiating drug interaction [Recovered/Resolved]
